FAERS Safety Report 8625129-3 (Version None)
Quarter: 2012Q3

REPORT INFORMATION
  Report Type: 
  Country: None (occurrence: None)
  Receive Date: 20120827
  Receipt Date: 20120814
  Transmission Date: 20120928
  Serious: Yes (Hospitalization)
  Sender: FDA-Public Use
  Company Number: FR-VIIV HEALTHCARE LIMITED-B0822630A

PATIENT
  Sex: Male

DRUGS (6)
  1. ISENTRESS [Suspect]
     Indication: HIV INFECTION
     Dosage: 400MG TWICE PER DAY
     Route: 048
     Dates: start: 20120604
  2. NORVIR [Concomitant]
     Indication: HIV INFECTION
     Route: 065
  3. PREZISTA [Concomitant]
     Indication: HIV INFECTION
     Route: 065
  4. OLMESARTAN MEDOXOMIL [Suspect]
     Indication: HYPERTENSION
     Dosage: 40MG PER DAY
     Route: 048
     Dates: start: 20111101
  5. ABACAVIR SULFATE/LAMIVUDINE [Suspect]
     Indication: HIV INFECTION
     Dosage: 1TAB PER DAY
     Route: 048
     Dates: start: 20120130
  6. FENOFIBRATE [Suspect]
     Indication: DYSLIPIDAEMIA
     Dosage: 300MG PER DAY
     Route: 048
     Dates: start: 20120405

REACTIONS (4)
  - PYREXIA [None]
  - ERYTHEMA [None]
  - ARTHRITIS [None]
  - OEDEMA PERIPHERAL [None]
